FAERS Safety Report 13688948 (Version 1)
Quarter: 2017Q2

REPORT INFORMATION
  Report Type: Spontaneous
  Country: US (occurrence: US)
  Receive Date: 20170624
  Receipt Date: 20170624
  Transmission Date: 20170830
  Serious: Yes (Other)
  Sender: FDA-Public Use
  Company Number: None

PATIENT
  Age: 47 Year
  Sex: Female
  Weight: 83.25 kg

DRUGS (6)
  1. MIRVASO [Suspect]
     Active Substance: BRIMONIDINE TARTRATE
     Indication: PROPHYLAXIS
     Dosage: ?          OTHER STRENGTH:N/A;QUANTITY:1 1;?
     Route: 061
     Dates: start: 20170615, end: 20170622
  2. ALLEGRA [Concomitant]
     Active Substance: FEXOFENADINE HYDROCHLORIDE
  3. ESCITALOPRAM [Concomitant]
     Active Substance: ESCITALOPRAM OXALATE
  4. FLONASE [Concomitant]
     Active Substance: FLUTICASONE PROPIONATE
  5. PEPCID AC [Concomitant]
     Active Substance: FAMOTIDINE
  6. MIRVASO [Suspect]
     Active Substance: BRIMONIDINE TARTRATE
     Indication: FLUSHING
     Dosage: ?          OTHER STRENGTH:N/A;QUANTITY:1 1;?
     Route: 061
     Dates: start: 20170615, end: 20170622

REACTIONS (3)
  - Flushing [None]
  - Condition aggravated [None]
  - Rebound effect [None]

NARRATIVE: CASE EVENT DATE: 20170624
